FAERS Safety Report 6627642-7 (Version None)
Quarter: 2010Q1

REPORT INFORMATION
  Report Type: 
  Country: None (occurrence: None)
  Receive Date: 20100308
  Receipt Date: 20100222
  Transmission Date: 20100710
  Serious: Yes (Hospitalization)
  Sender: FDA-Public Use
  Company Number: 008963

PATIENT
  Age: 82 Year
  Sex: Male

DRUGS (7)
  1. PLETAL [Suspect]
     Indication: ARTERIOSCLEROSIS OBLITERANS
     Dosage: 100 MG, QD, ORAL, 100 MG, DAILY DOSE; ORAL
     Route: 048
     Dates: start: 20090404
  2. WARFARIN SODIUM [Suspect]
     Dosage: 1.5 MG, QD, ORAL
     Route: 048
     Dates: end: 20091027
  3. LASIX [Concomitant]
  4. MICARDIS [Concomitant]
  5. VERAPAMIL HYDROCHLORIDE [Concomitant]
  6. ALLOPURINOL [Concomitant]
  7. DIGOXIN [Concomitant]

REACTIONS (1)
  - TUMOUR HAEMORRHAGE [None]
